FAERS Safety Report 8336439-1 (Version None)
Quarter: 2012Q2

REPORT INFORMATION
  Report Type: 
  Country: None (occurrence: None)
  Receive Date: 20120504
  Receipt Date: 20120430
  Transmission Date: 20120825
  Serious: Yes (Death, Hospitalization)
  Sender: FDA-Public Use
  Company Number: US-PFIZER INC-2012106104

PATIENT
  Sex: Male
  Weight: 78.005 kg

DRUGS (9)
  1. REVATIO [Suspect]
     Indication: DYSPNOEA
  2. LOTENSIN [Concomitant]
     Dosage: 20 MG, DAILY
  3. ACETYLSALICYLIC ACID [Concomitant]
     Dosage: UNK , DAILY
  4. SIMVASTATIN [Concomitant]
     Dosage: 40 MG, DAILY
  5. ATENOLOL [Concomitant]
     Dosage: 50 MG, DAILY
  6. REVATIO [Suspect]
     Indication: PULMONARY HYPERTENSION
     Dosage: UNK
     Route: 048
     Dates: start: 20120101
  7. ZOLOFT [Concomitant]
     Indication: DEPRESSION
     Dosage: 25 MG, DAILY
  8. VITAMIN D [Concomitant]
     Dosage: UNK , DAILY
  9. GLYBURIDE [Concomitant]
     Dosage: 5 MG, 2X/DAY

REACTIONS (3)
  - CARDIAC ARREST [None]
  - DRUG INTOLERANCE [None]
  - DRUG INEFFECTIVE [None]
